FAERS Safety Report 8860729 (Version 1)
Quarter: 2012Q4

REPORT INFORMATION
  Report Type: 
  Country: US (occurrence: US)
  Receive Date: 20121025
  Receipt Date: 20121025
  Transmission Date: 20130627
  Serious: No
  Sender: FDA-Public Use
  Company Number: US-009507513-1210USA009814

PATIENT

DRUGS (2)
  1. SAPHRIS [Suspect]
     Route: 060
  2. SEROQUEL [Concomitant]

REACTIONS (1)
  - Parkinsonism [Unknown]
